FAERS Safety Report 12070980 (Version 1)
Quarter: 2016Q1

REPORT INFORMATION
  Report Type: Spontaneous
  Country: US (occurrence: US)
  Receive Date: 20160211
  Receipt Date: 20160211
  Transmission Date: 20160526
  Serious: Yes (Other)
  Sender: FDA-Public Use
  Company Number: US-PRINSTON PHARMACEUTICAL INC.-2016PRN00029

PATIENT
  Age: 12 Year
  Sex: Female
  Weight: 54 kg

DRUGS (6)
  1. LEVETIRACETAM. [Suspect]
     Active Substance: LEVETIRACETAM
     Indication: CONVULSION PROPHYLAXIS
     Dosage: 10 MG/KG, OVER 30 MINUTES
     Route: 042
  2. CLORAZEPATE [Concomitant]
     Active Substance: CLORAZEPATE DIPOTASSIUM
     Dosage: UNK, 2X/DAY
     Route: 065
  3. MIDAZOLAM [Concomitant]
     Active Substance: MIDAZOLAM\MIDAZOLAM HYDROCHLORIDE
     Dosage: 10 MG, UNK
     Route: 048
  4. REMIFENTANYL [Concomitant]
     Active Substance: REMIFENTANIL
     Dosage: 0.05 TO 0.15 MCG/KG/MINUTE
     Route: 042
  5. TOPIRAMATE. [Concomitant]
     Active Substance: TOPIRAMATE
     Dosage: UNK, 2X/DAY
     Route: 065
  6. PROPOFOL. [Concomitant]
     Active Substance: PROPOFOL
     Dosage: 125 TO 200 MCG/KG/MINUTE
     Route: 042

REACTIONS (1)
  - Electroencephalogram abnormal [Recovered/Resolved]
